FAERS Safety Report 17713632 (Version 1)
Quarter: 2020Q2

REPORT INFORMATION
  Report Type: Spontaneous
  Country: US (occurrence: US)
  Receive Date: 20200427
  Receipt Date: 20200427
  Transmission Date: 20200714
  Serious: No
  Sender: FDA-Public Use
  Company Number: US-ROCHE-2538173

PATIENT
  Age: 35 Year
  Sex: Male

DRUGS (2)
  1. XOFLUZA [Suspect]
     Active Substance: BALOXAVIR MARBOXIL
     Indication: INFLUENZA
     Dosage: 80 MG DOSE (TWO 40 MG TABLETS) ONCE ;ONGOING: UNKNOWN
     Route: 048
     Dates: start: 20200127
  2. TAMIFLU [Suspect]
     Active Substance: OSELTAMIVIR PHOSPHATE
     Indication: INFLUENZA
     Dosage: 75 MG TWICE DAILY FOR 5 DAYS ;ONGOING: UNKNOWN
     Route: 048
     Dates: start: 20200127

REACTIONS (2)
  - Vomiting [Unknown]
  - Medication error [Unknown]

NARRATIVE: CASE EVENT DATE: 20200127
